FAERS Safety Report 5265722-1 (Version None)
Quarter: 2007Q1

REPORT INFORMATION
  Report Type: 
  Country: None (occurrence: None)
  Receive Date: 20061213
  Receipt Date: 20041202
  Transmission Date: 20070707
  Serious: Yes (Other)
  Sender: FDA-Public Use
  Company Number: 2004UW23658

PATIENT
  Age: 67 Year
  Sex: Female
  Weight: 45.359 kg

DRUGS (6)
  1. IRESSA [Suspect]
     Indication: NON-SMALL CELL LUNG CANCER
     Dates: start: 20041018
  2. ALBUTEROL [Concomitant]
  3. PLAVIX [Concomitant]
  4. THIAMINE HCL [Concomitant]
  5. CITRACAL [Concomitant]
  6. PREDNISONE [Concomitant]

REACTIONS (5)
  - BLOOD CREATINE INCREASED [None]
  - DERMATITIS EXFOLIATIVE [None]
  - DRY MOUTH [None]
  - DRY SKIN [None]
  - OEDEMA [None]
